FAERS Safety Report 10621573 (Version 1)
Quarter: 2014Q4

REPORT INFORMATION
  Report Type: Spontaneous
  Country: US (occurrence: None)
  Receive Date: 20141128
  Receipt Date: 20141128
  Transmission Date: 20150529
  Serious: Yes (Other)
  Sender: FDA-Public Use
  Company Number: 2014COV00157

PATIENT
  Age: 81 Year
  Sex: Male

DRUGS (3)
  1. AMIODARONE (AMIODARONE) [Suspect]
     Active Substance: AMIODARONE
  2. DIGOXIN (DIGOXIN) [Suspect]
     Active Substance: DIGOXIN
  3. WARFARIN (WARFARIN) [Concomitant]
     Active Substance: WARFARIN

REACTIONS (3)
  - Toxicity to various agents [None]
  - Cardioactive drug level increased [None]
  - Optic neuropathy [None]
